FAERS Safety Report 9940587 (Version 2)
Quarter: 2014Q1

REPORT INFORMATION
  Report Type: Spontaneous
  Country: CA (occurrence: CA)
  Receive Date: 20140303
  Receipt Date: 20140303
  Transmission Date: 20141002
  Serious: Yes (Other)
  Sender: FDA-Public Use
  Company Number: CA-PFIZER INC-HQWYE364526JUL06

PATIENT
  Age: 28 Year
  Sex: Female

DRUGS (1)
  1. PIPERACILLIN/TAZOBACTAM [Suspect]
     Indication: OSTEOMYELITIS
     Dosage: 3.375 G,1X/6 HR
     Route: 041

REACTIONS (7)
  - Drug hypersensitivity [Recovering/Resolving]
  - Hepatitis toxic [Recovering/Resolving]
  - Tubulointerstitial nephritis [Recovering/Resolving]
  - Infusion site anaesthesia [Unknown]
  - Infusion site paraesthesia [Unknown]
  - Face oedema [Unknown]
  - Lymphadenopathy [Unknown]
